FAERS Safety Report 9886795 (Version 1)
Quarter: 2014Q1

REPORT INFORMATION
  Report Type: Report from Study
  Country: US (occurrence: US)
  Receive Date: 20140210
  Receipt Date: 20140210
  Transmission Date: 20141002
  Serious: Yes (Death)
  Sender: FDA-Public Use
  Company Number: US-BAXTER-2014BAX006653

PATIENT
  Sex: 0

DRUGS (12)
  1. CYCLOPHOSPHAMIDE FOR INJECTION, USP [Suspect]
     Indication: ACUTE LEUKAEMIA
     Route: 065
  2. VINCRISTINE [Suspect]
     Indication: ACUTE LEUKAEMIA
     Route: 065
  3. DOXORUBICIN [Suspect]
     Indication: ACUTE LEUKAEMIA
     Route: 065
  4. DEXAMETHASONE [Suspect]
     Indication: ACUTE LEUKAEMIA
     Route: 065
  5. CYTARABINE [Suspect]
     Indication: ACUTE LEUKAEMIA
     Dosage: 1 G/M2 OR 3 G/M2
     Route: 065
  6. FLUCONAZOLE [Suspect]
     Indication: ACUTE LEUKAEMIA
     Route: 065
  7. VORICONAZOLE [Suspect]
     Indication: ACUTE LEUKAEMIA
     Route: 065
  8. POSACONAZOLE [Suspect]
     Indication: ACUTE LEUKAEMIA
     Route: 065
  9. CIPROFLOXACIN [Suspect]
     Indication: ACUTE LEUKAEMIA
     Route: 065
  10. LEVOFLOXACIN [Suspect]
     Indication: ACUTE LEUKAEMIA
     Route: 065
  11. ACYCLOVIR [Suspect]
     Indication: ACUTE LEUKAEMIA
     Route: 065
  12. VALACYCLOVIR [Suspect]
     Indication: ACUTE LEUKAEMIA
     Route: 065

REACTIONS (1)
  - Death [Fatal]
